FAERS Safety Report 7673583-6 (Version None)
Quarter: 2011Q3

REPORT INFORMATION
  Report Type: 
  Country: None (occurrence: None)
  Receive Date: 20110804
  Receipt Date: 20110725
  Transmission Date: 20111222
  Serious: Yes (Death)
  Sender: FDA-Public Use
  Company Number: 2011S1000245

PATIENT

DRUGS (1)
  1. INOMAX [Suspect]
     Dosage: ;INH
     Route: 055

REACTIONS (1)
  - DEATH [None]
